FAERS Safety Report 14064346 (Version 2)
Quarter: 2017Q4

REPORT INFORMATION
  Report Type: Spontaneous
  Country: NL (occurrence: NL)
  Receive Date: 20171009
  Receipt Date: 20171106
  Transmission Date: 20180321
  Serious: Yes (Death, Hospitalization)
  Sender: FDA-Public Use
  Company Number: NL-PFIZER INC-2017429592

PATIENT
  Age: 23 Year
  Sex: Female

DRUGS (5)
  1. VITAMIN B FORTE [Concomitant]
     Route: 048
  2. CHLOORHEXIDINE DIGLUCONAAT [Concomitant]
     Route: 048
  3. SOLIFENACINE [Concomitant]
     Route: 048
  4. DEPO-PROVERA [Suspect]
     Active Substance: MEDROXYPROGESTERONE ACETATE
     Indication: CONTRACEPTION
     Dosage: 150 MG, EVERY 3 MONTHS
     Route: 030
     Dates: start: 20160705
  5. ISOSORBIDEDINITRAAT [Concomitant]
     Route: 048

REACTIONS (5)
  - Diarrhoea [Fatal]
  - Petechiae [Fatal]
  - Haemolytic uraemic syndrome [Fatal]
  - Vomiting [Fatal]
  - Thrombotic thrombocytopenic purpura [Fatal]

NARRATIVE: CASE EVENT DATE: 20161009
